FAERS Safety Report 6101991-3 (Version None)
Quarter: 2009Q1

REPORT INFORMATION
  Report Type: 
  Country: None (occurrence: None)
  Receive Date: 20090227
  Receipt Date: 20081112
  Transmission Date: 20090719
  Serious: Yes (Other)
  Sender: FDA-Public Use
  Company Number: 269937

PATIENT
  Age: 14 Year
  Sex: Male
  Weight: 44.2 kg

DRUGS (2)
  1. NUTROPIN AQ [Suspect]
     Indication: BODY HEIGHT BELOW NORMAL
     Dosage: 3 MG, QD, SUBCUTANEOUS
     Route: 058
     Dates: start: 20080402
  2. NUTROPIN AQ [Suspect]
     Indication: NERVOUS SYSTEM DISORDER
     Dosage: 3 MG, QD, SUBCUTANEOUS
     Route: 058
     Dates: start: 20080402

REACTIONS (1)
  - SCOLIOSIS [None]
